FAERS Safety Report 4788232-4 (Version None)
Quarter: 2005Q4

REPORT INFORMATION
  Report Type: 
  Country: None (occurrence: None)
  Receive Date: 20051004
  Receipt Date: 20051004
  Transmission Date: 20060501
  Serious: Yes (Disabling)
  Sender: FDA-Public Use
  Company Number: None

PATIENT
  Sex: Male
  Weight: 77.1115 kg

DRUGS (1)
  1. VIAGRA [Suspect]
     Indication: ERECTILE DYSFUNCTION
     Dosage: PO
     Route: 048
     Dates: start: 19980101, end: 19980201

REACTIONS (2)
  - RETINAL ARTERY OCCLUSION [None]
  - VISUAL FIELD DEFECT [None]
